FAERS Safety Report 16429365 (Version 1)
Quarter: 2019Q2

REPORT INFORMATION
  Report Type: Spontaneous
  Country: GB (occurrence: GB)
  Receive Date: 20190614
  Receipt Date: 20190614
  Transmission Date: 20190711
  Serious: Yes (Hospitalization, Other)
  Sender: FDA-Public Use
  Company Number: GB-AMGEN-GBRSP2019094545

PATIENT
  Age: 29 Year
  Sex: Female
  Weight: 56 kg

DRUGS (1)
  1. ENBREL [Suspect]
     Active Substance: ETANERCEPT
     Indication: RHEUMATOID ARTHRITIS
     Dosage: UNK
     Route: 065
     Dates: start: 201801

REACTIONS (2)
  - Acute kidney injury [Recovering/Resolving]
  - Nephritis [Recovering/Resolving]

NARRATIVE: CASE EVENT DATE: 20180816
